FAERS Safety Report 9903607 (Version 3)
Quarter: 2014Q1

REPORT INFORMATION
  Report Type: Spontaneous
  Country: US (occurrence: US)
  Receive Date: 20140217
  Receipt Date: 20140226
  Transmission Date: 20141002
  Serious: Yes (Hospitalization)
  Sender: FDA-Public Use
  Company Number: US-BAXTER-2014BAX004357

PATIENT
  Age: 49 Year
  Sex: Male
  Weight: 68.04 kg

DRUGS (3)
  1. DIANEAL LOW CALCIUM [Suspect]
     Indication: RENAL FAILURE CHRONIC
     Route: 033
     Dates: start: 2007, end: 20140122
  2. DIANEAL LOW CALCIUM [Suspect]
     Indication: RENAL FAILURE CHRONIC
     Route: 033
     Dates: start: 2007, end: 20140122
  3. DIANEAL LOW CALCIUM (ULTRABAG) [Suspect]
     Indication: RENAL FAILURE CHRONIC
     Route: 033
     Dates: start: 2007, end: 20140122

REACTIONS (4)
  - Cardiac flutter [Recovering/Resolving]
  - Azotaemia [Recovering/Resolving]
  - Hypotension [Recovering/Resolving]
  - Dyspnoea [Recovered/Resolved]
